FAERS Safety Report 5455501-4 (Version None)
Quarter: 2007Q3

REPORT INFORMATION
  Report Type: 
  Country: None (occurrence: None)
  Receive Date: 20070914
  Receipt Date: 20070906
  Transmission Date: 20080115
  Serious: Yes (Other)
  Sender: FDA-Public Use
  Company Number: 163-21880-07030562

PATIENT
  Age: 67 Year
  Sex: Female

DRUGS (23)
  1. REVLIMID [Suspect]
     Indication: MYELOFIBROSIS
     Dosage: 5 MG, 1 IN 1 D, ORAL
     Route: 048
     Dates: start: 20070312, end: 20070315
  2. METHYLPREDNISOLONE (METHYLPREDNISOLONE) (TABLETS) [Concomitant]
  3. ACETAMINOPHEN (PARACETAMOL) (TABLETS) [Concomitant]
  4. ALLOPURINOL (ALLOPURINOL) (TABLETS) [Concomitant]
  5. ATENOLOL [Concomitant]
  6. FOLIC ACID [Concomitant]
  7. FOSAMAX (ALENDRONATE SODIUM) (TABLETS) [Concomitant]
  8. FUROSEMIDE [Concomitant]
  9. GAS-X MAXIMUM STRENGTH (DIMETICONE, ACTIVATED) (CAPSULES) [Concomitant]
  10. GLIPIZIDE [Concomitant]
  11. K;OR-CON (POTASSIUM CHLORIDE) (TABLETS) [Concomitant]
  12. LEVOTHYROXINE SODIUM (LEVOTHYROXINE SODIUM) (TABLETS) [Concomitant]
  13. OSCAL 500/200 D-3 (CALCITE D) (TABLETS) [Concomitant]
  14. SIMVASTATIN (SIMVASTATIN) (TABLETS) [Concomitant]
  15. SPIRONOLACTONE [Concomitant]
  16. ZYRTEC [Concomitant]
  17. PROCRIT [Concomitant]
  18. DOCUSATE SODIUM (DOCUSATE SODIUM) (CAPSULES) [Concomitant]
  19. FLUTICASONE PROPIONATE (FLUTICASONE PROPIONATE) (INHALANT) [Concomitant]
  20. HYDROXYUREA (HYDROXYCARBAMIDE) (CAPSULES) [Concomitant]
  21. METFORMIN HCL (METFORMIN HYDROCHLORIDE) (TABLETS) [Concomitant]
  22. PREDNISONE (PREDNISONE) (TABLETS) [Concomitant]
  23. PREVACID (LANSOPRAZOLE) (TABLETS) [Concomitant]

REACTIONS (3)
  - DIZZINESS [None]
  - SOMNOLENCE [None]
  - STEVENS-JOHNSON SYNDROME [None]
